FAERS Safety Report 5021358-9 (Version None)
Quarter: 2006Q2

REPORT INFORMATION
  Report Type: 
  Country: None (occurrence: None)
  Receive Date: 20060608
  Receipt Date: 20051228
  Transmission Date: 20061013
  Serious: No
  Sender: FDA-Public Use
  Company Number: US-BRISTOL-MYERS SQUIBB COMPANY-13230875

PATIENT
  Age: 77 Year
  Sex: Male

DRUGS (2)
  1. SINEMET [Suspect]
  2. REQUIP [Suspect]

REACTIONS (1)
  - VISUAL DISTURBANCE [None]
